FAERS Safety Report 13575582 (Version 2)
Quarter: 2017Q2

REPORT INFORMATION
  Report Type: Spontaneous
  Country: JP (occurrence: JP)
  Receive Date: 20170524
  Receipt Date: 20170530
  Transmission Date: 20170830
  Serious: Yes (Death, Other)
  Sender: FDA-Public Use
  Company Number: JP-SUN PHARMACEUTICAL INDUSTRIES LTD-2017RR-141341

PATIENT
  Age: 68 Year
  Sex: Female

DRUGS (5)
  1. CISPLATIN. [Suspect]
     Active Substance: CISPLATIN
     Indication: GALLBLADDER CANCER METASTATIC
     Dosage: 25 MG/M2, DAY 1, 8, ONE COURSE - 3 WEEKS
     Route: 065
  2. POTASSIUM WARFARIN [Concomitant]
     Indication: PULMONARY ARTERY THROMBOSIS
     Dosage: UNK
     Route: 065
  3. CISPLATIN. [Suspect]
     Active Substance: CISPLATIN
     Indication: METASTASES TO LYMPH NODES
  4. GEMCITABINE [Suspect]
     Active Substance: GEMCITABINE\GEMCITABINE HYDROCHLORIDE
     Indication: GALLBLADDER CANCER METASTATIC
     Dosage: 1000 MG/M2, UNK
     Route: 065
  5. GEMCITABINE [Suspect]
     Active Substance: GEMCITABINE\GEMCITABINE HYDROCHLORIDE
     Indication: METASTASES TO LYMPH NODES

REACTIONS (5)
  - Jaundice [Unknown]
  - Disease progression [Fatal]
  - Malaise [Unknown]
  - Leukopenia [Unknown]
  - Lymphangiosis carcinomatosa [Fatal]
